FAERS Safety Report 17586363 (Version 1)
Quarter: 2020Q1

REPORT INFORMATION
  Report Type: Spontaneous
  Country: IL (occurrence: IL)
  Receive Date: 20200326
  Receipt Date: 20200326
  Transmission Date: 20200409
  Serious: Yes (Other)
  Sender: FDA-Public Use
  Company Number: NVSC2020IL084020

PATIENT
  Age: 54 Year
  Sex: Female

DRUGS (1)
  1. MYCOPHENOLATE MOFETIL. [Suspect]
     Active Substance: MYCOPHENOLATE MOFETIL
     Indication: GASTRIC ANTRAL VASCULAR ECTASIA
     Dosage: UNK
     Route: 065

REACTIONS (2)
  - Gastric antral vascular ectasia [Unknown]
  - Product use in unapproved indication [Unknown]
